FAERS Safety Report 5139189-8 (Version None)
Quarter: 2006Q4

REPORT INFORMATION
  Report Type: 
  Country: None (occurrence: None)
  Receive Date: 20061030
  Receipt Date: 20060710
  Transmission Date: 20070319
  Serious: No
  Sender: FDA-Public Use
  Company Number: US-GLAXOSMITHKLINE-A0611650A

PATIENT
  Age: 37 Year
  Sex: Female

DRUGS (5)
  1. ADVAIR HFA [Suspect]
     Indication: DRUG USE FOR UNKNOWN INDICATION
     Route: 055
     Dates: start: 20060622
  2. PREVACID [Concomitant]
  3. REGLAN [Concomitant]
  4. FLOVENT [Concomitant]
  5. FLEXERIL [Concomitant]

REACTIONS (1)
  - SWELLING FACE [None]
